FAERS Safety Report 12238387 (Version 1)
Quarter: 2016Q2

REPORT INFORMATION
  Report Type: Spontaneous
  Country: FR (occurrence: FR)
  Receive Date: 20160405
  Receipt Date: 20160405
  Transmission Date: 20160815
  Serious: Yes (Other)
  Sender: FDA-Public Use
  Company Number: FR-SA-2016SA066619

PATIENT
  Age: 66 Year
  Sex: Male

DRUGS (8)
  1. LOVENOX [Suspect]
     Active Substance: ENOXAPARIN SODIUM
     Indication: ATRIAL FIBRILLATION
     Route: 065
     Dates: start: 20160206, end: 20160208
  2. KARDEGIC [Concomitant]
     Active Substance: ASPIRIN LYSINE
  3. DIFFU K [Concomitant]
     Active Substance: POTASSIUM CHLORIDE
  4. CORDARONE [Suspect]
     Active Substance: AMIODARONE HYDROCHLORIDE
     Indication: ATRIAL FIBRILLATION
     Route: 042
     Dates: start: 20160206, end: 20160208
  5. INEXIUM [Suspect]
     Active Substance: ESOMEPRAZOLE
     Indication: ULCER
     Route: 065
     Dates: start: 20160206, end: 20160208
  6. TAHOR [Concomitant]
     Active Substance: ATORVASTATIN CALCIUM
  7. COUMADINE [Concomitant]
     Active Substance: WARFARIN SODIUM
  8. BISOCE [Concomitant]
     Active Substance: BISOPROLOL

REACTIONS (1)
  - Hepatitis [Recovered/Resolved]

NARRATIVE: CASE EVENT DATE: 20160206
